FAERS Safety Report 10289414 (Version 1)
Quarter: 2014Q3

REPORT INFORMATION
  Report Type: Spontaneous
  Country: IT (occurrence: IT)
  Receive Date: 20140710
  Receipt Date: 20140710
  Transmission Date: 20150326
  Serious: Yes (Other)
  Sender: FDA-Public Use
  Company Number: PHHY2014IT083684

PATIENT
  Age: 36 Year
  Sex: Male

DRUGS (3)
  1. GLARGINE [Concomitant]
     Indication: TYPE 1 DIABETES MELLITUS
  2. WARFARIN [Suspect]
     Active Substance: WARFARIN
     Indication: ATRIAL FIBRILLATION
  3. ASPART [Concomitant]
     Indication: TYPE 1 DIABETES MELLITUS

REACTIONS (1)
  - Hyperglycaemia [Recovered/Resolved]
